FAERS Safety Report 9308721 (Version 1)
Quarter: 2013Q2

REPORT INFORMATION
  Report Type: Spontaneous
  Country: EC (occurrence: EC)
  Receive Date: 20130524
  Receipt Date: 20130524
  Transmission Date: 20140414
  Serious: Yes (Other)
  Sender: FDA-Public Use
  Company Number: EC-JNJFOC-20130513657

PATIENT
  Age: 41 Year
  Sex: Female

DRUGS (4)
  1. PREZISTA [Suspect]
     Indication: PRODUCT USED FOR UNKNOWN INDICATION
     Route: 048
  2. LOPINAVIR + RITONAVIR [Suspect]
     Indication: PRODUCT USED FOR UNKNOWN INDICATION
     Route: 065
  3. ZIDOVUDINE [Concomitant]
     Route: 065
  4. 3-TC [Concomitant]
     Route: 065

REACTIONS (3)
  - Tachycardia [Unknown]
  - Syncope [Recovering/Resolving]
  - Malaise [Recovering/Resolving]
